FAERS Safety Report 9820041 (Version 1)
Quarter: 2013Q4

REPORT INFORMATION
  Report Type: Spontaneous
  Country: US (occurrence: None)
  Receive Date: 20131223
  Receipt Date: 20131223
  Transmission Date: 20140711
  Serious: Yes (Other)
  Sender: FDA-Public Use
  Company Number: 220950

PATIENT
  Age: 42 Year
  Sex: Female

DRUGS (1)
  1. PICATO [Suspect]
     Indication: SKIN DISORDER
     Dosage: GEL, ONCE DAILY FOR 3 DAYS
     Dates: start: 20130310, end: 20130313

REACTIONS (7)
  - Application site pain [None]
  - Application site erythema [None]
  - Application site papules [None]
  - Headache [None]
  - Application site pain [None]
  - Application site dryness [None]
  - Application site exfoliation [None]
